FAERS Safety Report 19813060 (Version 1)
Quarter: 2021Q3

REPORT INFORMATION
  Report Type: Spontaneous
  Country: US (occurrence: US)
  Receive Date: 20210909
  Receipt Date: 20210909
  Transmission Date: 20211014
  Serious: No
  Sender: FDA-Public Use
  Company Number: US-PERRIGO-20US016265

PATIENT
  Age: 41 Year
  Sex: Female
  Weight: 68.03 kg

DRUGS (8)
  1. MINOXIDIL. [Suspect]
     Active Substance: MINOXIDIL
     Dosage: 0.5 ML, BID
     Route: 061
     Dates: start: 202010, end: 20201108
  2. MINOXIDIL. [Suspect]
     Active Substance: MINOXIDIL
     Indication: ALOPECIA
     Dosage: 1 ML, BID
     Route: 061
     Dates: start: 202006, end: 202008
  3. IBUPROFEN. [Concomitant]
     Active Substance: IBUPROFEN
     Indication: PAIN
  4. MINOXIDIL. [Suspect]
     Active Substance: MINOXIDIL
     Dosage: 0.5 ML, BID
     Route: 061
     Dates: start: 202008, end: 202010
  5. TYLENOL [Concomitant]
     Active Substance: ACETAMINOPHEN
     Indication: HEADACHE
     Dosage: UNK, PRN
     Route: 048
  6. ALLERTEC [Concomitant]
     Active Substance: CETIRIZINE HYDROCHLORIDE
     Indication: PERENNIAL ALLERGY
     Dosage: UNK
     Route: 065
     Dates: start: 2016
  7. ALLERTEC [Concomitant]
     Active Substance: CETIRIZINE HYDROCHLORIDE
     Indication: HYPERSENSITIVITY
  8. IBUPROFEN. [Concomitant]
     Active Substance: IBUPROFEN
     Indication: MENSTRUAL DISCOMFORT
     Dosage: UNK, PRN
     Route: 065

REACTIONS (5)
  - Application site scab [Not Recovered/Not Resolved]
  - Application site pruritus [Not Recovered/Not Resolved]
  - Accidental exposure to product [Recovered/Resolved]
  - Underdose [Recovered/Resolved]
  - Rash papular [Not Recovered/Not Resolved]

NARRATIVE: CASE EVENT DATE: 202006
